FAERS Safety Report 14931147 (Version 1)
Quarter: 2018Q2

REPORT INFORMATION
  Report Type: Spontaneous
  Country: FR (occurrence: FR)
  Receive Date: 20180524
  Receipt Date: 20180524
  Transmission Date: 20180711
  Serious: Yes (Other)
  Sender: FDA-Public Use
  Company Number: FR-TEVA-2018-FR-894806

PATIENT
  Age: 63 Year
  Sex: Male

DRUGS (1)
  1. VINCRISTINE [Suspect]
     Active Substance: VINCRISTINE
     Indication: ANAPLASTIC LARGE CELL LYMPHOMA T- AND NULL-CELL TYPES STAGE IV
     Route: 042
     Dates: start: 20111229, end: 20120411

REACTIONS (1)
  - Neuropathy peripheral [Not Recovered/Not Resolved]

NARRATIVE: CASE EVENT DATE: 20120321
